FAERS Safety Report 9831516 (Version 1)
Quarter: 2014Q1

REPORT INFORMATION
  Report Type: Spontaneous
  Country: US (occurrence: US)
  Receive Date: 20140121
  Receipt Date: 20140121
  Transmission Date: 20141002
  Serious: Yes (Other)
  Sender: FDA-Public Use
  Company Number: US-JNJCP-30000195800

PATIENT
  Sex: Female
  Weight: 77 kg

DRUGS (1)
  1. CLEAN + CLEAR CONTINUOUS CONTROL ACNE CLEANSER [Suspect]
     Indication: ACNE
     Dosage: ABOUT A NICKEL SIZE ON EACH CHEEK,USED ONLY ONE TIME
     Route: 061
     Dates: start: 20140103, end: 20140103

REACTIONS (2)
  - Chemical burn of skin [Not Recovered/Not Resolved]
  - Application site reaction [Not Recovered/Not Resolved]
